FAERS Safety Report 20536484 (Version 1)
Quarter: 2022Q1

REPORT INFORMATION
  Report Type: Report from Study
  Country: TW (occurrence: TW)
  Receive Date: 20220302
  Receipt Date: 20220302
  Transmission Date: 20220423
  Serious: Yes (Death, Life-Threatening, Hospitalization)
  Sender: FDA-Public Use
  Company Number: TW-JNJFOC-20210906570

PATIENT
  Age: 88 Year
  Sex: Male
  Weight: 54.4 kg

DRUGS (6)
  1. STELARA [Suspect]
     Active Substance: USTEKINUMAB
     Indication: Crohn^s disease
     Route: 042
     Dates: start: 20210623, end: 20210623
  2. STELARA [Suspect]
     Active Substance: USTEKINUMAB
     Route: 058
     Dates: start: 20210803, end: 20210803
  3. PENTASA [Concomitant]
     Active Substance: MESALAMINE
     Indication: Crohn^s disease
     Route: 048
     Dates: start: 20210520, end: 20210820
  4. IMURAN [Concomitant]
     Active Substance: AZATHIOPRINE
     Indication: Crohn^s disease
     Route: 048
     Dates: start: 20210603, end: 20210820
  5. METHYLPREDNISOLONE SODIUM SUCCINATE [Concomitant]
     Active Substance: METHYLPREDNISOLONE SODIUM SUCCINATE
     Indication: Crohn^s disease
     Route: 042
     Dates: start: 20210524, end: 20210707
  6. PREDNISOLONE ACETATE [Concomitant]
     Active Substance: PREDNISOLONE ACETATE
     Indication: Crohn^s disease
     Dosage: 20-5 MG
     Route: 048
     Dates: start: 20210707, end: 20210820

REACTIONS (4)
  - Urinary tract infection [Fatal]
  - Cytomegalovirus viraemia [Fatal]
  - Pneumocystis jirovecii pneumonia [Fatal]
  - Crohn^s disease [Fatal]

NARRATIVE: CASE EVENT DATE: 20210820
